FAERS Safety Report 6595440-9 (Version None)
Quarter: 2010Q1

REPORT INFORMATION
  Report Type: 
  Country: None (occurrence: None)
  Receive Date: 20100223
  Receipt Date: 20100216
  Transmission Date: 20100710
  Serious: Yes (Hospitalization, Other)
  Sender: FDA-Public Use
  Company Number: US-BAYER-201010938NA

PATIENT
  Age: 25 Year
  Sex: Female

DRUGS (4)
  1. YAZ [Suspect]
     Indication: CONTRACEPTION
     Route: 048
     Dates: start: 20091005, end: 20091205
  2. ANTI-INFLAMMATORY [Concomitant]
     Indication: HEADACHE
  3. VALTREX [Concomitant]
     Indication: HERPES SIMPLEX
  4. NUVARING [Concomitant]
     Indication: CONTRACEPTION

REACTIONS (3)
  - CHEST DISCOMFORT [None]
  - LUNG DISORDER [None]
  - OESOPHAGEAL DISORDER [None]
